FAERS Safety Report 7796894-2 (Version None)
Quarter: 2011Q4

REPORT INFORMATION
  Report Type: 
  Country: None (occurrence: None)
  Receive Date: 20111003
  Receipt Date: 20110922
  Transmission Date: 20120403
  Serious: Yes (Other)
  Sender: FDA-Public Use
  Company Number: US-ACCORD-010740

PATIENT
  Sex: Male
  Weight: 66 kg

DRUGS (1)
  1. SIMVASTATIN [Suspect]
     Indication: HYPERCHOLESTEROLAEMIA
     Dosage: 80.00-MG-1.0DAYS /ORAL
     Route: 048

REACTIONS (3)
  - FALL [None]
  - SKULL FRACTURE [None]
  - MUSCULAR WEAKNESS [None]
